FAERS Safety Report 24219375 (Version 1)
Quarter: 2024Q3

REPORT INFORMATION
  Report Type: Spontaneous
  Country: US (occurrence: US)
  Receive Date: 20240816
  Receipt Date: 20240816
  Transmission Date: 20241016
  Serious: No
  Sender: GE HEALTHCARE
  Company Number: US-GE HEALTHCARE-2024CSU005572

PATIENT
  Age: 79 Year
  Sex: Male
  Weight: 70 kg

DRUGS (12)
  1. OMNIPAQUE [Suspect]
     Active Substance: IOHEXOL
     Indication: Computerised tomogram abdomen
     Dosage: 100 ML, TOTAL
     Route: 042
     Dates: start: 20240522, end: 20240522
  2. DOXYCYCLINE [Concomitant]
     Active Substance: DOXYCYCLINE\DOXYCYCLINE HYCLATE
     Dosage: 100 MG, BID
  3. PREDNISONE [Concomitant]
     Active Substance: PREDNISONE
     Dosage: 40 MG, QD
  4. ROBAXIN [Concomitant]
     Active Substance: METHOCARBAMOL
     Dosage: 500 MG, TID
  5. ALBUTEROL [Concomitant]
     Active Substance: ALBUTEROL
     Dosage: 400 MCG, PRN
  6. VITAMIN B12 [Concomitant]
     Active Substance: CYANOCOBALAMIN
     Dosage: 1000 MCG, QD
  7. ADVIL [Concomitant]
     Active Substance: IBUPROFEN\IBUPROFEN SODIUM
     Dosage: 200 MG, PRN
  8. AMLODIPINE [Concomitant]
     Active Substance: AMLODIPINE BESYLATE
     Dosage: 2.45 MG, QD
  9. THERA D [Concomitant]
     Dosage: UNK, QD
     Route: 048
  10. PAROXETINE [Concomitant]
     Active Substance: PAROXETINE
     Dosage: 20 MG
  11. ROSUVASTATIN [Concomitant]
     Active Substance: ROSUVASTATIN\ROSUVASTATIN CALCIUM
     Dosage: 10 MG, QOD
  12. PRIMIDONE [Concomitant]
     Active Substance: PRIMIDONE
     Dosage: 50 MG, BID

REACTIONS (2)
  - Vomiting [Recovered/Resolved]
  - Nausea [Recovered/Resolved]

NARRATIVE: CASE EVENT DATE: 20240522
